FAERS Safety Report 21175671 (Version 1)
Quarter: 2022Q3

REPORT INFORMATION
  Report Type: Spontaneous
  Country: IT (occurrence: IT)
  Receive Date: 20220805
  Receipt Date: 20220805
  Transmission Date: 20221026
  Serious: Yes (Other)
  Sender: FDA-Public Use
  Company Number: IT-TEVA-2022-IT-2056012

PATIENT
  Age: 58 Year
  Sex: Female

DRUGS (7)
  1. ONDANSETRON [Suspect]
     Active Substance: ONDANSETRON
     Indication: Prophylaxis
     Dosage: 8 MILLIGRAM
     Route: 065
     Dates: start: 20220621
  2. CARBOPLATIN [Suspect]
     Active Substance: CARBOPLATIN
     Indication: Breast cancer
     Dosage: 180 MILLIGRAM,(600 MG/60 ML) EVERY WEEK
     Route: 065
     Dates: start: 20220621, end: 20220628
  3. CHLORPHENIRAMINE MALEATE [Suspect]
     Active Substance: CHLORPHENIRAMINE MALEATE
     Indication: Prophylaxis
     Dosage: 10 MILLIGRAM
     Route: 065
     Dates: start: 20220621
  4. DEXAMETHASONE [Suspect]
     Active Substance: DEXAMETHASONE
     Indication: Prophylaxis
     Dosage: 16 MILLIGRAM
     Route: 065
     Dates: start: 20220621
  5. HYDROCORTISONE [Suspect]
     Active Substance: HYDROCORTISONE
     Indication: Prophylaxis
     Dosage: 500 MILLIGRAM
     Route: 065
     Dates: start: 20220621
  6. KEYTRUDA [Suspect]
     Active Substance: PEMBROLIZUMAB
     Indication: Breast cancer
     Dosage: 200 MILLIGRAM, EVERY 21 DAY
     Route: 065
     Dates: start: 20220621
  7. PACLITAXEL [Suspect]
     Active Substance: PACLITAXEL
     Indication: Breast cancer
     Dosage: 100 MILLIGRAM, (600MG/100ML) EVERY WEEK
     Route: 065
     Dates: start: 20220621

REACTIONS (3)
  - Paraesthesia oral [Recovered/Resolved]
  - Toxicity to various agents [Recovered/Resolved]
  - Paraesthesia [Recovered/Resolved]

NARRATIVE: CASE EVENT DATE: 20220628
